FAERS Safety Report 10605948 (Version 6)
Quarter: 2015Q2

REPORT INFORMATION
  Report Type: Report from Study
  Country: US (occurrence: US)
  Receive Date: 20141125
  Receipt Date: 20150604
  Transmission Date: 20150821
  Serious: Yes (Hospitalization)
  Sender: FDA-Public Use
  Company Number: US-BIOGENIDEC-2014BI117853

PATIENT
  Age: 43 Year
  Sex: Female
  Weight: 95 kg

DRUGS (13)
  1. COLACE [Concomitant]
     Active Substance: DOCUSATE SODIUM
  2. BIIB017 [Suspect]
     Active Substance: PEGINTERFERON BETA-1A
     Indication: MULTIPLE SCLEROSIS
     Dates: end: 20141023
  3. ZYRTEC [Concomitant]
     Active Substance: CETIRIZINE HYDROCHLORIDE
  4. BIIB017 [Suspect]
     Active Substance: PEGINTERFERON BETA-1A
     Indication: MULTIPLE SCLEROSIS
     Route: 058
     Dates: start: 20140703, end: 20140703
  5. MAGNESIUM OXIDE. [Concomitant]
     Active Substance: MAGNESIUM OXIDE
     Route: 048
  6. BIIB017 [Suspect]
     Active Substance: PEGINTERFERON BETA-1A
     Indication: MULTIPLE SCLEROSIS
     Route: 058
     Dates: start: 20140731, end: 20141009
  7. NYSTATIN. [Concomitant]
     Active Substance: NYSTATIN
  8. BIIB017 [Suspect]
     Active Substance: PEGINTERFERON BETA-1A
     Indication: MULTIPLE SCLEROSIS
     Route: 058
     Dates: start: 20140717, end: 20140717
  9. PROZAC [Concomitant]
     Active Substance: FLUOXETINE HYDROCHLORIDE
  10. KLONOPIN [Concomitant]
     Active Substance: CLONAZEPAM
  11. HCTZ [Concomitant]
     Active Substance: HYDROCHLOROTHIAZIDE
  12. PROZAC [Concomitant]
     Active Substance: FLUOXETINE HYDROCHLORIDE
  13. PEPCID [Concomitant]
     Active Substance: FAMOTIDINE
     Route: 048

REACTIONS (5)
  - Sepsis [Recovered/Resolved with Sequelae]
  - Pneumonia [Recovered/Resolved]
  - Respiratory failure [Recovered/Resolved with Sequelae]
  - Urinary tract infection [Recovered/Resolved]
  - Influenza [Recovered/Resolved with Sequelae]

NARRATIVE: CASE EVENT DATE: 20141022
